FAERS Safety Report 15392369 (Version 4)
Quarter: 2018Q4

REPORT INFORMATION
  Report Type: Spontaneous
  Country: US (occurrence: US)
  Receive Date: 20180917
  Receipt Date: 20181113
  Transmission Date: 20190204
  Serious: Yes (Other)
  Sender: FDA-Public Use
  Company Number: US-COOPERSURGICAL, INC.-US-2018CPS033011

PATIENT

DRUGS (1)
  1. PARAGARD T 380A [Suspect]
     Active Substance: COPPER
     Indication: CONTRACEPTION
     Dosage: UNK
     Route: 015
     Dates: start: 201710, end: 20171116

REACTIONS (7)
  - Pain [Not Recovered/Not Resolved]
  - Scar pain [Not Recovered/Not Resolved]
  - Abscess [Recovered/Resolved]
  - Procedural pain [Recovered/Resolved]
  - Embedded device [Recovered/Resolved]
  - Infection [Recovered/Resolved]
  - Menorrhagia [Not Recovered/Not Resolved]

NARRATIVE: CASE EVENT DATE: 201710
